FAERS Safety Report 25212855 (Version 1)
Quarter: 2025Q2

REPORT INFORMATION
  Report Type: Spontaneous
  Country: US (occurrence: US)
  Receive Date: 20250418
  Receipt Date: 20250418
  Transmission Date: 20250717
  Serious: No
  Sender: AUROBINDO
  Company Number: US-AUROBINDO-AUR-APL-2025-000349

PATIENT
  Sex: Female

DRUGS (3)
  1. ARMODAFINIL [Suspect]
     Active Substance: ARMODAFINIL
     Indication: Hypersomnia
     Route: 065
  2. ARMODAFINIL [Suspect]
     Active Substance: ARMODAFINIL
     Route: 065
  3. CAFFEINE [Concomitant]
     Active Substance: CAFFEINE
     Indication: Product used for unknown indication
     Route: 065

REACTIONS (8)
  - Tremor [Unknown]
  - Impaired quality of life [Unknown]
  - Therapeutic response decreased [Unknown]
  - Drug ineffective [Unknown]
  - Recalled product administered [Unknown]
  - Suspected product contamination [Unknown]
  - Product taste abnormal [Unknown]
  - Product substitution issue [Unknown]
